FAERS Safety Report 7680425-1 (Version None)
Quarter: 2011Q3

REPORT INFORMATION
  Report Type: 
  Country: None (occurrence: None)
  Receive Date: 20110812
  Receipt Date: 20110808
  Transmission Date: 20111222
  Serious: Yes (Hospitalization)
  Sender: FDA-Public Use
  Company Number: FR-SANOFI-AVENTIS-2011SA051174

PATIENT
  Age: 76 Year
  Sex: Male

DRUGS (12)
  1. PLACEBO [Suspect]
     Indication: THROMBOSIS PROPHYLAXIS
     Route: 048
     Dates: start: 20100506, end: 20100514
  2. ESOMEPRAZOLE MAGNESIUM [Concomitant]
     Dates: start: 20100504, end: 20100517
  3. LOPERAMIDE HCL [Concomitant]
     Dates: start: 20100510, end: 20100512
  4. PANTOPRAZOLE SODIUM [Concomitant]
  5. ENOXAPARIN SODIUM [Suspect]
     Indication: THROMBOSIS PROPHYLAXIS
     Route: 058
     Dates: start: 20100506, end: 20100513
  6. CLARITHROMYCIN [Concomitant]
     Dates: start: 20100504, end: 20100510
  7. ALBUTEROL [Concomitant]
     Dates: start: 20100507, end: 20100517
  8. COLCHICINE [Concomitant]
     Dates: start: 20100507, end: 20100514
  9. ACETAMINOPHEN [Concomitant]
     Dates: start: 20100504, end: 20100510
  10. ACUPAN [Concomitant]
     Dates: start: 20100504, end: 20100511
  11. CEFTRIAXONE [Concomitant]
     Dates: start: 20100504, end: 20100513
  12. LEXOMIL [Concomitant]

REACTIONS (1)
  - HEPATITIS [None]
